FAERS Safety Report 6447826-0 (Version None)
Quarter: 2009Q4

REPORT INFORMATION
  Report Type: 
  Country: None (occurrence: None)
  Receive Date: 20091120
  Receipt Date: 20091103
  Transmission Date: 20100525
  Serious: No
  Sender: FDA-Public Use
  Company Number: A0809306A

PATIENT
  Age: 50 Year
  Sex: Male

DRUGS (2)
  1. VERAMYST [Suspect]
     Indication: SINUS OPERATION
     Dosage: 4SPR PER DAY
     Route: 045
     Dates: start: 20090601, end: 20090919
  2. AYR SALINE NASAL DROPS [Concomitant]

REACTIONS (6)
  - NASAL DISCOMFORT [None]
  - NASAL DRYNESS [None]
  - PRODUCT QUALITY ISSUE [None]
  - RASH [None]
  - RHINITIS [None]
  - UPPER AIRWAY OBSTRUCTION [None]
